FAERS Safety Report 15962441 (Version 1)
Quarter: 2019Q1

REPORT INFORMATION
  Report Type: Spontaneous
  Country: US (occurrence: US)
  Receive Date: 20190214
  Receipt Date: 20190214
  Transmission Date: 20190417
  Serious: Yes (Other)
  Sender: FDA-Public Use
  Company Number: US-GLAXOSMITHKLINE-US2019025481

PATIENT
  Sex: Male

DRUGS (6)
  1. TUMS [Suspect]
     Active Substance: CALCIUM CARBONATE
     Indication: ABDOMINAL PAIN UPPER
  2. TUMS [Suspect]
     Active Substance: CALCIUM CARBONATE
     Indication: SINUSITIS
  3. TUMS [Suspect]
     Active Substance: CALCIUM CARBONATE
     Indication: HEADACHE
     Dosage: UNK
  4. TUMS [Suspect]
     Active Substance: CALCIUM CARBONATE
     Indication: NASOPHARYNGITIS
  5. TUMS [Suspect]
     Active Substance: CALCIUM CARBONATE
     Indication: INFLUENZA
  6. TUMS [Suspect]
     Active Substance: CALCIUM CARBONATE
     Indication: RHINORRHOEA

REACTIONS (3)
  - Product use in unapproved indication [Unknown]
  - Drug effective for unapproved indication [Unknown]
  - Drug dependence [Unknown]
